FAERS Safety Report 6631465-2 (Version None)
Quarter: 2010Q1

REPORT INFORMATION
  Report Type: 
  Country: None (occurrence: None)
  Receive Date: 20100312
  Receipt Date: 20100311
  Transmission Date: 20100710
  Serious: Yes (Disabling)
  Sender: FDA-Public Use
  Company Number: US-TEVA-221826USA

PATIENT
  Sex: Male

DRUGS (1)
  1. PIMOZIDE TABLETS [Suspect]
     Indication: PRURITUS
     Route: 048
     Dates: start: 20050201

REACTIONS (3)
  - ACTIVITIES OF DAILY LIVING IMPAIRED [None]
  - TREMOR [None]
  - WEIGHT DECREASED [None]
